FAERS Safety Report 7503336-0 (Version None)
Quarter: 2011Q2

REPORT INFORMATION
  Report Type: 
  Country: None (occurrence: None)
  Receive Date: 20110524
  Receipt Date: 20110524
  Transmission Date: 20111010
  Serious: Yes (Hospitalization)
  Sender: FDA-Public Use
  Company Number: None

PATIENT
  Age: 39 Year
  Sex: Female

DRUGS (3)
  1. PAROXETINE HCL [Suspect]
     Dosage: 30MG HS PO
     Route: 048
  2. ROBAXIN [Concomitant]
  3. DIPHENHYDRAMINE HCL [Suspect]
     Dosage: 25MG TID PO
     Route: 048

REACTIONS (1)
  - INTESTINAL OBSTRUCTION [None]
